FAERS Safety Report 16311782 (Version 3)
Quarter: 2019Q2

REPORT INFORMATION
  Report Type: Spontaneous
  Country: BR (occurrence: BR)
  Receive Date: 20190514
  Receipt Date: 20190602
  Transmission Date: 20190711
  Serious: Yes (Death, Hospitalization, Other)
  Sender: FDA-Public Use
  Company Number: PHHY2019BR108970

PATIENT
  Sex: Male

DRUGS (2)
  1. GLIVEC [Suspect]
     Active Substance: IMATINIB MESYLATE
     Indication: CHRONIC MYELOID LEUKAEMIA
     Dosage: UNK
     Route: 065
     Dates: end: 201902
  2. TASIGNA [Suspect]
     Active Substance: NILOTINIB
     Indication: CHRONIC MYELOID LEUKAEMIA
     Dosage: 2 DF, QD
     Route: 048
     Dates: start: 201902, end: 20190501

REACTIONS (18)
  - Arrhythmia [Unknown]
  - Speech disorder [Unknown]
  - Myelitis transverse [Fatal]
  - Decreased appetite [Unknown]
  - Encephalitis viral [Unknown]
  - Urinary incontinence [Unknown]
  - Nausea [Unknown]
  - Pneumonia [Fatal]
  - Movement disorder [Fatal]
  - Spinal pain [Unknown]
  - Malaise [Unknown]
  - Paralysis [Unknown]
  - Tremor [Unknown]
  - Chromaturia [Unknown]
  - Encephalitis cytomegalovirus [Unknown]
  - Depressed level of consciousness [Unknown]
  - Pain in extremity [Unknown]
  - Therapeutic response decreased [Unknown]
